FAERS Safety Report 23869789 (Version 4)
Quarter: 2025Q1

REPORT INFORMATION
  Report Type: Spontaneous
  Country: US (occurrence: US)
  Receive Date: 20240517
  Receipt Date: 20250321
  Transmission Date: 20250409
  Serious: Yes (Death, Other)
  Sender: PFIZER
  Company Number: US-PFIZER INC-202101164976

PATIENT
  Age: 80 Year
  Sex: Female

DRUGS (3)
  1. XELJANZ XR [Suspect]
     Active Substance: TOFACITINIB CITRATE
     Dosage: 11 MG, 1X/DAY
     Route: 048
  2. RESTASIS [Concomitant]
     Active Substance: CYCLOSPORINE
     Dosage: 1 DROP, 2X/DAY (EYE DROPS IN A DROPPERETTE, EVERY 12 HOURS INTO AFFECTED EYE)
     Route: 047
  3. CYCLOSPORINE [Concomitant]
     Active Substance: CYCLOSPORINE
     Dosage: 1 DROP, 2X/DAY (EYE DROPS IN A DROPPERETTE, EVERY 12 HOURS INTO AFFECTED EYE)
     Route: 047

REACTIONS (2)
  - Illness [Fatal]
  - Rheumatoid arthritis [Unknown]
